FAERS Safety Report 19095831 (Version 1)
Quarter: 2021Q2

REPORT INFORMATION
  Report Type: Spontaneous
  Country: US (occurrence: US)
  Receive Date: 20210406
  Receipt Date: 20210406
  Transmission Date: 20210717
  Serious: No
  Sender: FDA-Public Use
  Company Number: US-TEVA-2021-US-1890124

PATIENT
  Sex: Female

DRUGS (2)
  1. AUSTEDO [Suspect]
     Active Substance: DEUTETRABENAZINE
     Indication: TARDIVE DYSKINESIA
     Route: 065
     Dates: start: 20200306
  2. AUSTEDO [Suspect]
     Active Substance: DEUTETRABENAZINE
     Dosage: 42 MILLIGRAM DAILY; CURRENTLY TAKING 21 MG (9+12MG) TWICE DAILY DOSE
     Route: 065

REACTIONS (4)
  - Depressed mood [Unknown]
  - Insomnia [Unknown]
  - Drug ineffective [Unknown]
  - Peripheral swelling [Unknown]
